FAERS Safety Report 9711366 (Version 3)
Quarter: 2014Q2

REPORT INFORMATION
  Report Type: Spontaneous
  Country: US (occurrence: US)
  Receive Date: 20131126
  Receipt Date: 20140510
  Transmission Date: 20141212
  Serious: Yes (Hospitalization)
  Sender: FDA-Public Use
  Company Number: US-BRISTOL-MYERS SQUIBB COMPANY-19211887

PATIENT
  Sex: Female

DRUGS (2)
  1. BYETTA [Suspect]
     Route: 058
  2. SULFONYLUREA [Suspect]

REACTIONS (1)
  - Hypoglycaemia [Unknown]
